FAERS Safety Report 4596668-X (Version None)
Quarter: 2005Q1

REPORT INFORMATION
  Report Type: 
  Country: None (occurrence: None)
  Receive Date: 20050228
  Receipt Date: 20050125
  Transmission Date: 20050727
  Serious: Yes (Other)
  Sender: FDA-Public Use
  Company Number: 2005028097

PATIENT
  Age: 70 Year
  Sex: Female
  Weight: 55 kg

DRUGS (3)
  1. CELEBREX [Suspect]
     Indication: RHEUMATOID ARTHRITIS
     Dosage: 200 MG (1 IN 1 AS NECESSARY), ORAL
     Route: 048
  2. PRAVASTATIN [Concomitant]
  3. ACETAMINOPHEN [Concomitant]

REACTIONS (4)
  - FALL [None]
  - MITRAL VALVE INCOMPETENCE [None]
  - SILENT MYOCARDIAL INFARCTION [None]
  - WRIST FRACTURE [None]
